FAERS Safety Report 8929431 (Version 1)
Quarter: 2012Q4

REPORT INFORMATION
  Report Type: Spontaneous
  Country: US (occurrence: None)
  Receive Date: 20121120
  Receipt Date: 20121120
  Transmission Date: 20130627
  Serious: Yes (Hospitalization)
  Sender: FDA-Public Use
  Company Number: FK201203336

PATIENT
  Age: 41 Year
  Sex: Female

DRUGS (7)
  1. HEPARIN [Suspect]
     Indication: ANTICOAGULANT THERAPY
     Dosage: Unknown,  UNKNOWN,   Intravenous  (not otherwise specified)
     Route: 042
  2. ASPIRIN (ACETYLSALICYLIC ACID) [Concomitant]
  3. WARFARIN (WARFARIN) [Concomitant]
  4. ENOXAPARIN (ENOXAPARIN) [Concomitant]
  5. CYCLOPHOSPHAMIDE (CYCLOPHOSPHAMIDE) [Concomitant]
  6. BORTEZOMIB (BORTEZOMIB) [Concomitant]
  7. DEXAMETHASONE (DEXAMETHASONE) [Concomitant]

REACTIONS (5)
  - Intestinal ischaemia [None]
  - Intestinal obstruction [None]
  - Intra-abdominal haematoma [None]
  - Lower gastrointestinal haemorrhage [None]
  - Pulmonary embolism [None]
